FAERS Safety Report 18900358 (Version 2)
Quarter: 2021Q1

REPORT INFORMATION
  Report Type: Report from Study
  Country: CN (occurrence: CN)
  Receive Date: 20210216
  Receipt Date: 20210218
  Transmission Date: 20210420
  Serious: Yes (Hospitalization, Other)
  Sender: FDA-Public Use
  Company Number: CN-GLAXOSMITHKLINE-CN2021GSK041312

PATIENT
  Sex: Male

DRUGS (3)
  1. ORNIDAZOLE [Suspect]
     Active Substance: ORNIDAZOLE
     Indication: LISTERIOSIS
     Dosage: UNK
     Route: 064
  2. CEFUROXIME SODIUM. [Suspect]
     Active Substance: CEFUROXIME SODIUM
     Indication: LISTERIOSIS
     Dosage: UNK
     Route: 064
  3. PIPERACILLIN. [Suspect]
     Active Substance: PIPERACILLIN SODIUM
     Indication: LISTERIOSIS
     Route: 064

REACTIONS (5)
  - Haematochezia [Unknown]
  - Pyrexia [Unknown]
  - Foetal movement disorder [Unknown]
  - Foetal exposure during pregnancy [Unknown]
  - Foetal heart rate increased [Unknown]
